FAERS Safety Report 9172995 (Version 1)
Quarter: 2013Q1

REPORT INFORMATION
  Report Type: Report from Study
  Country: US (occurrence: US)
  Receive Date: 20130320
  Receipt Date: 20130320
  Transmission Date: 20140127
  Serious: Yes (Hospitalization)
  Sender: FDA-Public Use
  Company Number: US-BIOGENIDEC-2013BI014443

PATIENT
  Age: 36 Year
  Sex: Female
  Weight: 61 kg

DRUGS (6)
  1. TYSABRI [Suspect]
     Indication: MULTIPLE SCLEROSIS
     Route: 042
     Dates: start: 20090827, end: 20121023
  2. TOPAMAX [Concomitant]
     Indication: MIGRAINE
     Dates: start: 2004
  3. RITALIN [Concomitant]
     Indication: FATIGUE
     Dates: start: 200810
  4. BACLOFEN [Concomitant]
     Indication: MUSCLE SPASMS
     Dates: start: 20081016
  5. VITAMIN D [Concomitant]
     Indication: MEDICAL DIET
     Dates: start: 201207
  6. VITAMIN B 12 [Concomitant]
     Indication: MEDICAL DIET
     Dates: start: 201207

REACTIONS (1)
  - Migraine [Recovered/Resolved]
